FAERS Safety Report 8857599 (Version 1)
Quarter: 2012Q4

REPORT INFORMATION
  Report Type: 
  Country: IT (occurrence: IT)
  Receive Date: 20121024
  Receipt Date: 20121024
  Transmission Date: 20130627
  Serious: Yes (Hospitalization, Other)
  Sender: FDA-Public Use
  Company Number: PHHY2012IT093513

PATIENT
  Age: 76 Year
  Sex: Male

DRUGS (6)
  1. TICLOPIDINE [Suspect]
     Indication: CARDIAC DISORDER
     Dosage: 2 DF, Daily
     Route: 048
     Dates: start: 20120601, end: 20121008
  2. LASITONE [Concomitant]
     Indication: CARDIOVASCULAR EVENT PROPHYLAXIS
     Route: 048
  3. SERETIDE [Concomitant]
     Indication: BRONCHOPNEUMONIA
  4. NIFEREX [Concomitant]
     Indication: ANAEMIA
     Route: 048
     Dates: start: 20120717, end: 20121008
  5. PANTORC [Concomitant]
     Indication: PROPHYLAXIS
     Route: 048
  6. AMIODARONE [Concomitant]
     Indication: CARDIAC DISORDER

REACTIONS (2)
  - Melaena [Recovered/Resolved]
  - Angiodysplasia [Unknown]
